FAERS Safety Report 6991728-8 (Version None)
Quarter: 2010Q3

REPORT INFORMATION
  Report Type: 
  Country: None (occurrence: None)
  Receive Date: 20100917
  Receipt Date: 20100825
  Transmission Date: 20110219
  Serious: No
  Sender: FDA-Public Use
  Company Number: US-PFIZER INC-2010107935

PATIENT
  Age: 54 Year
  Sex: Female
  Weight: 88.435 kg

DRUGS (1)
  1. HALCION [Suspect]
     Indication: SLEEP DISORDER
     Dosage: 0.25 MG, DAILY
     Route: 048
     Dates: start: 20100701

REACTIONS (1)
  - DRUG INEFFECTIVE [None]
